FAERS Safety Report 5065992-9 (Version None)
Quarter: 2006Q3

REPORT INFORMATION
  Report Type: 
  Country: None (occurrence: None)
  Receive Date: 20060726
  Receipt Date: 20060428
  Transmission Date: 20061208
  Serious: Yes (Hospitalization, Disabling, Other)
  Sender: FDA-Public Use
  Company Number: 2006088661

PATIENT
  Age: 27 Year
  Sex: Female

DRUGS (22)
  1. DELTACORTRIL [Suspect]
     Indication: VASCULITIS
     Dosage: ORAL
     Route: 048
     Dates: start: 19970607, end: 19990101
  2. DICLOFENAC SODIUM [Concomitant]
  3. CYTOTEC [Concomitant]
  4. LIBRIUM [Concomitant]
  5. INDOMETHACIN [Concomitant]
  6. CILEST (ETHINYLESTRADIOL, NORGESTIMATE) [Concomitant]
  7. CIMELDINE (CIMETIDINE) [Concomitant]
  8. HALCION [Concomitant]
  9. DISTALGESTIC           (DEXTROPROPOXYPHENE HYDROCHLORIDE, PARACETAMOL) [Concomitant]
  10. CLONAMP (AMPICILLIN) [Concomitant]
  11. DALMANE [Concomitant]
  12. NAPROSYN [Concomitant]
  13. ACETAMINOPHEN [Concomitant]
  14. LACTULOSE [Concomitant]
  15. LOSEC (OMEPRAZOLE) [Concomitant]
  16. FRUMIL (AMILORIDE HYDROCHLORIDE, FUROSEMIDE) [Concomitant]
  17. AULIN (NIMESULIDE) [Concomitant]
  18. FLOXACILLIN SODIUM [Concomitant]
  19. CEFRADINE (CEFRADINE) [Concomitant]
  20. CALVEPEN (PHENOXYMETHYLPENICILLIN CALCIUM) [Concomitant]
  21. OROVITE (ASCORBIC ACID, NICOTINAMIDE, PYRIDOXINE HYDROCHLORIDE, RIBOFL [Concomitant]
  22. DICLOFENAC (DICLOFENAC) [Concomitant]

REACTIONS (11)
  - BACK DISORDER [None]
  - CARTILAGE INJURY [None]
  - COLONIC STENOSIS [None]
  - CONVULSION [None]
  - DEPRESSION [None]
  - GENERAL PHYSICAL HEALTH DETERIORATION [None]
  - INSOMNIA [None]
  - LIVER DISORDER [None]
  - OSTEONECROSIS [None]
  - PAIN [None]
  - STOMACH DISCOMFORT [None]
